FAERS Safety Report 23634128 (Version 1)
Quarter: 2024Q1

REPORT INFORMATION
  Report Type: Spontaneous
  Country: SE (occurrence: SE)
  Receive Date: 20240314
  Receipt Date: 20240314
  Transmission Date: 20240410
  Serious: Yes (Other)
  Sender: FDA-Public Use
  Company Number: None

PATIENT
  Age: 67 Year
  Sex: Female

DRUGS (14)
  1. RINVOQ [Suspect]
     Active Substance: UPADACITINIB
     Indication: Psoriatic arthropathy
     Route: 048
     Dates: start: 20220726, end: 20230824
  2. CITALOPRAM [Concomitant]
     Active Substance: CITALOPRAM HYDROBROMIDE
     Indication: Product used for unknown indication
     Route: 048
  3. SKYRIZI [Concomitant]
     Active Substance: RISANKIZUMAB-RZAA
     Indication: Product used for unknown indication
     Dosage: ACCORDING TO PRESCRIPTION
  4. OMEPRAZOLE [Concomitant]
     Active Substance: OMEPRAZOLE
     Indication: Product used for unknown indication
     Route: 048
  5. Pevisone [Concomitant]
     Indication: Product used for unknown indication
     Dosage: ACCORDING TO PRESCRIPTION
  6. ENSTILAR [Concomitant]
     Active Substance: BETAMETHASONE DIPROPIONATE\CALCIPOTRIENE HYDRATE
     Indication: Product used for unknown indication
     Dosage: ACCORDING TO PRESCRIPTION
  7. Betolvex [Concomitant]
     Indication: Product used for unknown indication
     Route: 048
  8. ACETAMINOPHEN [Concomitant]
     Active Substance: ACETAMINOPHEN
     Indication: Product used for unknown indication
     Dosage: TIME INTERVAL: 1 AS NECESSARY
  9. FERRIC MALTOL [Concomitant]
     Active Substance: FERRIC MALTOL
     Indication: Product used for unknown indication
     Dosage: STRENGTH: 231.5MG
     Route: 048
  10. BETAMETHASONE [Concomitant]
     Active Substance: BETAMETHASONE\BETAMETHASONE DIPROPIONATE
     Indication: Product used for unknown indication
     Dosage: DOSAGE: 1 MG/ML ACCORDING TO PRESCRIPTION?1.22 MG/ML
  11. METFORMIN [Concomitant]
     Active Substance: METFORMIN HYDROCHLORIDE
     Indication: Product used for unknown indication
     Route: 048
  12. ATORVASTATIN [Concomitant]
     Active Substance: ATORVASTATIN
     Indication: Product used for unknown indication
     Route: 048
  13. MOMETASONE FUROATE [Concomitant]
     Active Substance: MOMETASONE FUROATE
     Indication: Product used for unknown indication
     Dosage: ACCORDING TO PRESCRIPTION
  14. LOPERAMIDE [Concomitant]
     Active Substance: LOPERAMIDE
     Indication: Product used for unknown indication
     Dosage: TIME INTERVAL: 1 AS NECESSARY: 1-3 AS NECESSARY
     Route: 048

REACTIONS (1)
  - Anaemia macrocytic [Not Recovered/Not Resolved]

NARRATIVE: CASE EVENT DATE: 20230525
